FAERS Safety Report 23982669 (Version 1)
Quarter: 2024Q2

REPORT INFORMATION
  Report Type: Spontaneous
  Country: FR (occurrence: FR)
  Receive Date: 20240617
  Receipt Date: 20240617
  Transmission Date: 20240715
  Serious: Yes (Hospitalization)
  Sender: FDA-Public Use
  Company Number: None

PATIENT
  Age: 75 Year
  Sex: Female

DRUGS (15)
  1. AMLODIPINE [Suspect]
     Active Substance: AMLODIPINE BESYLATE
     Indication: Hypertension
     Dosage: 5 MG, QD
     Route: 048
  2. AZARGA [Suspect]
     Active Substance: BRINZOLAMIDE\TIMOLOL MALEATE
     Indication: Product used for unknown indication
     Dosage: 1 DF, QD, 10 MG/ML: 1 TABLET/D IN BOTH EYES
     Route: 065
  3. BISOPROLOL [Suspect]
     Active Substance: BISOPROLOL\BISOPROLOL FUMARATE
     Indication: Hypertension
     Dosage: 90 MG, QD
     Route: 048
     Dates: end: 20231122
  4. BROMAZEPAM [Suspect]
     Active Substance: BROMAZEPAM
     Indication: Depression
     Dosage: 6 MG, QD, 0.5 CPX3/D; EVERY 1 DAY
     Route: 048
  5. CHOLECALCIFEROL [Suspect]
     Active Substance: CHOLECALCIFEROL
     Indication: Product used for unknown indication
     Dosage: 1 DF, QD, 500 MG/400 IU: 1 SACHET/D
     Route: 065
  6. DIETARY SUPPLEMENT [Suspect]
     Active Substance: DIETARY SUPPLEMENT
     Indication: Product used for unknown indication
     Dosage: 1 DF, TID
     Route: 065
  7. IRBESARTAN [Suspect]
     Active Substance: IRBESARTAN
     Indication: Hypertension
     Dosage: 75 MG, QD, 1CP/D ,EVERY 1 DAY
     Route: 048
     Dates: end: 20231122
  8. KARDEGIC [Suspect]
     Active Substance: ASPIRIN DL-LYSINE
     Indication: Product used for unknown indication
     Dosage: 75 MG, QD
     Route: 065
  9. AMITRIPTYLINE HYDROCHLORIDE [Suspect]
     Active Substance: AMITRIPTYLINE HYDROCHLORIDE
     Indication: Depression
     Dosage: 75 MG, QD, 3 CAPS/D ;EVERY 1 DAY
     Route: 048
     Dates: end: 20231122
  10. POLYETHYLENE GLYCOL 4000 [Suspect]
     Active Substance: POLYETHYLENE GLYCOL 4000
     Indication: Product used for unknown indication
     Dosage: 4000: 2 SACHETS/D IF CONSTIPATION
     Route: 065
  11. MIANSERIN [Suspect]
     Active Substance: MIANSERIN
     Indication: Depression
     Dosage: 90 MG, QD, 1.5 CP/D; EVERY 1 DAY
     Route: 048
  12. OXYBUTYNIN [Suspect]
     Active Substance: OXYBUTYNIN\OXYBUTYNIN CHLORIDE
     Indication: Product used for unknown indication
     Dosage: 5 MG, QD, 0.5 CP/D ;EVERY 1 DAY
     Route: 048
     Dates: start: 202311, end: 20231122
  13. ZOPICLONE [Suspect]
     Active Substance: ZOPICLONE
     Indication: Depression
     Dosage: 3.75 MG, QD, 1CP/D; EVERY 1 DAY
     Route: 048
  14. AMIKACIN [Concomitant]
     Active Substance: AMIKACIN
     Indication: Product used for unknown indication
     Dosage: UNK
     Route: 065
  15. CEFTRIAXONE [Concomitant]
     Active Substance: CEFTRIAXONE\CEFTRIAXONE SODIUM
     Indication: Product used for unknown indication
     Dosage: UNK
     Route: 065

REACTIONS (6)
  - Multisystem inflammatory syndrome [Unknown]
  - Hyperleukocytosis [Unknown]
  - Leukocyturia [Unknown]
  - Bacteraemia [Unknown]
  - Hypotension [Recovered/Resolved]
  - Fall [Recovered/Resolved]

NARRATIVE: CASE EVENT DATE: 20231122
